FAERS Safety Report 9819117 (Version 2)
Quarter: 2014Q1

REPORT INFORMATION
  Report Type: Spontaneous
  Country: US (occurrence: None)
  Receive Date: 20131223
  Receipt Date: 20140228
  Transmission Date: 20141002
  Serious: No
  Sender: FDA-Public Use
  Company Number: 221781

PATIENT
  Sex: Female

DRUGS (1)
  1. PICATO (0.05%) [Suspect]
     Indication: ACTINIC KERATOSIS
     Dosage: AK BOTH HANDS
     Route: 061
     Dates: start: 201305, end: 201305

REACTIONS (10)
  - Eye swelling [None]
  - Eye pain [None]
  - Application site pain [None]
  - Application site vesicles [None]
  - Accidental exposure to product [None]
  - Drug administered at inappropriate site [None]
  - Application site pruritus [None]
  - Application site pain [None]
  - Application site erythema [None]
  - Application site irritation [None]
